FAERS Safety Report 5162844-0 (Version None)
Quarter: 2006Q4

REPORT INFORMATION
  Report Type: 
  Country: None (occurrence: None)
  Receive Date: 20061201
  Receipt Date: 20010516
  Transmission Date: 20070319
  Serious: Yes (Hospitalization)
  Sender: FDA-Public Use
  Company Number: FR-GLAXOSMITHKLINE-B0108324A

PATIENT
  Sex: Male

DRUGS (11)
  1. LAMIVUDINE [Suspect]
     Indication: HUMAN IMMUNODEFICIENCY VIRUS TRANSMISSION
     Route: 048
     Dates: start: 19970701
  2. ZIDOVUDINE [Suspect]
     Indication: HUMAN IMMUNODEFICIENCY VIRUS TRANSMISSION
     Route: 048
     Dates: start: 19970701
  3. ZIDOVUDINE [Suspect]
     Route: 065
  4. LAMIVUDINE [Suspect]
     Route: 065
  5. ZIDOVUDINE [Suspect]
     Route: 042
     Dates: start: 19970718, end: 19970718
  6. COTRIM D.S. [Concomitant]
     Route: 065
  7. COLPOSEPTINE [Concomitant]
     Route: 065
  8. ECONAZOLE NITRATE [Concomitant]
     Route: 065
  9. IRON [Concomitant]
     Route: 065
  10. MAGNE-B6 [Concomitant]
     Route: 065
  11. HYDROXYAPATITE [Concomitant]
     Route: 065

REACTIONS (27)
  - ABDOMINAL DISTENSION [None]
  - ABNORMAL BEHAVIOUR [None]
  - AGITATION [None]
  - ANAEMIA [None]
  - BLOOD TEST ABNORMAL [None]
  - CAESAREAN SECTION [None]
  - CARDIAC MURMUR [None]
  - COMMUNICATION DISORDER [None]
  - COORDINATION ABNORMAL [None]
  - DRUG EXPOSURE DURING PREGNANCY [None]
  - DYSPHAGIA [None]
  - GAIT DISTURBANCE [None]
  - GASTROOESOPHAGEAL REFLUX DISEASE [None]
  - HYPERTONIA [None]
  - LACTATE PYRUVATE RATIO INCREASED [None]
  - LIMB DEFORMITY [None]
  - MALAISE [None]
  - NEONATAL DISORDER [None]
  - NEUTROPENIA [None]
  - OESOPHAGITIS [None]
  - RESTLESSNESS [None]
  - SELF ESTEEM DECREASED [None]
  - SPEECH DISORDER DEVELOPMENTAL [None]
  - TACHYPNOEA [None]
  - TREMOR [None]
  - VENTRICULAR SEPTAL DEFECT [None]
  - VOMITING [None]
